FAERS Safety Report 25243385 (Version 1)
Quarter: 2025Q2

REPORT INFORMATION
  Report Type: Spontaneous
  Country: US (occurrence: US)
  Receive Date: 20250428
  Receipt Date: 20250428
  Transmission Date: 20250716
  Serious: No
  Sender: JOHNSON AND JOHNSON
  Company Number: US-JNJFOC-20250435340

PATIENT
  Age: 66 Year
  Sex: Female

DRUGS (1)
  1. TREMFYA [Suspect]
     Active Substance: GUSELKUMAB
     Indication: Product used for unknown indication
     Route: 041

REACTIONS (5)
  - Infusion related reaction [Unknown]
  - Nausea [Unknown]
  - Dizziness [Unknown]
  - Dizziness [Unknown]
  - Hypertension [Unknown]
